FAERS Safety Report 18259066 (Version 3)
Quarter: 2023Q2

REPORT INFORMATION
  Report Type: Spontaneous
  Country: US (occurrence: US)
  Receive Date: 20200911
  Receipt Date: 20230407
  Transmission Date: 20230722
  Serious: Yes (Other)
  Sender: FDA-Public Use
  Company Number: US-GILEAD-2020-0494481

PATIENT
  Age: 50 Year
  Sex: Male
  Weight: 69.841 kg

DRUGS (44)
  1. VIREAD [Suspect]
     Active Substance: TENOFOVIR DISOPROXIL FUMARATE
     Indication: Hepatitis B
     Dosage: UNK
     Route: 048
     Dates: start: 20090609, end: 20190306
  2. VIREAD [Suspect]
     Active Substance: TENOFOVIR DISOPROXIL FUMARATE
     Dosage: UNK
     Route: 048
     Dates: start: 20090609, end: 201801
  3. TENOFOVIR DISOPROXIL FUMARATE [Suspect]
     Active Substance: TENOFOVIR DISOPROXIL FUMARATE
     Indication: Hepatitis B
     Dosage: UNK
     Route: 065
     Dates: start: 2017
  4. FUROSEMIDE [Concomitant]
     Active Substance: FUROSEMIDE
  5. FERROUS SULFATE [Concomitant]
     Active Substance: FERROUS SULFATE
  6. EPIVIR [Concomitant]
     Active Substance: LAMIVUDINE
  7. AMLODIPINE BESYLATE [Concomitant]
     Active Substance: AMLODIPINE BESYLATE
  8. AMLODIPINE [Concomitant]
     Active Substance: AMLODIPINE BESYLATE
  9. AMMON [Concomitant]
  10. ASTEPRO [Concomitant]
     Active Substance: AZELASTINE HYDROCHLORIDE
  11. BUDESONIDE [Concomitant]
     Active Substance: BUDESONIDE
  12. CALCIPOTRIENE [Concomitant]
     Active Substance: CALCIPOTRIENE
  13. CELLCEPT [Concomitant]
     Active Substance: MYCOPHENOLATE MOFETIL
  14. CILOSTAZOL [Concomitant]
     Active Substance: CILOSTAZOL
  15. CLOPIDOGREL [Concomitant]
     Active Substance: CLOPIDOGREL BISULFATE
  16. COMBIVENT [Concomitant]
     Active Substance: ALBUTEROL SULFATE\IPRATROPIUM BROMIDE
  17. ELIQUIS [Concomitant]
     Active Substance: APIXABAN
  18. FLUTICASONE [Concomitant]
     Active Substance: FLUTICASONE
  19. HYDRALAZINE [Concomitant]
     Active Substance: HYDRALAZINE HYDROCHLORIDE
  20. HYDROCHLOROTHIAZIDE [Concomitant]
     Active Substance: HYDROCHLOROTHIAZIDE
  21. HYDROCODONE [Concomitant]
     Active Substance: HYDROCODONE
  22. LABETALOL [Concomitant]
     Active Substance: LABETALOL\LABETALOL HYDROCHLORIDE
  23. LACLOTION [Concomitant]
     Active Substance: AMMONIUM LACTATE
  24. LANTHANUM CARBONATE [Concomitant]
     Active Substance: LANTHANUM CARBONATE
  25. LEVOFLOXACIN [Concomitant]
     Active Substance: LEVOFLOXACIN
  26. LIDOCAINE [Concomitant]
     Active Substance: LIDOCAINE
  27. LISINOPRIL [Concomitant]
     Active Substance: LISINOPRIL
  28. LOSARTAN [Concomitant]
     Active Substance: LOSARTAN
  29. LOVAZA [Concomitant]
     Active Substance: OMEGA-3-ACID ETHYL ESTERS
  30. METOPROLOL [Concomitant]
     Active Substance: METOPROLOL
  31. METOPROLOL TARTRATE [Concomitant]
     Active Substance: METOPROLOL TARTRATE
  32. MYCOPHENOLIC ACID [Concomitant]
     Active Substance: MYCOPHENOLIC ACID
  33. NITROGLYCERIN [Concomitant]
     Active Substance: NITROGLYCERIN
  34. NYSTATIN;TRIAMCINOLONE [Concomitant]
  35. PREDNISONE [Concomitant]
     Active Substance: PREDNISONE
  36. PROGRAF [Concomitant]
     Active Substance: TACROLIMUS
  37. STIOLTO RESPIMAT [Concomitant]
     Active Substance: OLODATEROL HYDROCHLORIDE\TIOTROPIUM BROMIDE MONOHYDRATE
  38. SUPREP BOWEL PREP [Concomitant]
     Active Substance: MAGNESIUM SULFATE\POTASSIUM SULFATE\SODIUM SULFATE
  39. TACROLIMUS [Concomitant]
     Active Substance: TACROLIMUS
  40. TAMSULOSIN [Concomitant]
     Active Substance: TAMSULOSIN
  41. TERBINAFINE [Concomitant]
     Active Substance: TERBINAFINE
  42. TRIAMCINOLONE [Concomitant]
     Active Substance: TRIAMCINOLONE
  43. VITAMIN D3 [Concomitant]
     Active Substance: CHOLECALCIFEROL
  44. WARFARIN [Concomitant]
     Active Substance: WARFARIN

REACTIONS (10)
  - End stage renal disease [Recovered/Resolved]
  - Renal injury [Unknown]
  - Renal impairment [Unknown]
  - Hypokalaemia [Recovered/Resolved]
  - Anaemia [Not Recovered/Not Resolved]
  - Gout [Not Recovered/Not Resolved]
  - Emotional distress [Unknown]
  - Anhedonia [Unknown]
  - Anxiety [Unknown]
  - Pain [Unknown]

NARRATIVE: CASE EVENT DATE: 20090601
